FAERS Safety Report 22537560 (Version 2)
Quarter: 2023Q2

REPORT INFORMATION
  Report Type: Report from Study
  Country: US (occurrence: US)
  Receive Date: 20230608
  Receipt Date: 20230623
  Transmission Date: 20230721
  Serious: Yes (Other)
  Sender: FDA-Public Use
  Company Number: US-002147023-NVSC2023US130955

PATIENT
  Sex: Male

DRUGS (13)
  1. METHOTREXATE [Suspect]
     Active Substance: METHOTREXATE
     Indication: Psoriatic arthropathy
     Dosage: 10 MG, QW
     Route: 065
     Dates: start: 201812
  2. CLOBETASOL PROPIONATE [Suspect]
     Active Substance: CLOBETASOL PROPIONATE
     Indication: Psoriatic arthropathy
     Dosage: UNK
     Route: 065
  3. PREDNISONE [Suspect]
     Active Substance: PREDNISONE
     Indication: Psoriatic arthropathy
     Dosage: UNK
     Route: 065
  4. VITAMINS [Suspect]
     Active Substance: VITAMINS
     Indication: Psoriatic arthropathy
     Dosage: UNK, (OTHER DOSAGE: MULTI VITAMIN MENS)
     Route: 065
  5. VITAMINS [Suspect]
     Active Substance: VITAMINS
     Dosage: UNK, (OTHER DOSAGE: MULTI VITAMIN DAILY)
     Route: 065
  6. CELECOXIB [Suspect]
     Active Substance: CELECOXIB
     Indication: Psoriatic arthropathy
     Dosage: UNK
     Route: 065
  7. VITAMIN C [Suspect]
     Active Substance: ASCORBIC ACID
     Indication: Psoriatic arthropathy
     Dosage: UNK
     Route: 065
  8. ASPIRIN [Suspect]
     Active Substance: ASPIRIN
     Indication: Psoriatic arthropathy
     Dosage: UNK
     Route: 065
  9. ACETAMINOPHEN [Suspect]
     Active Substance: ACETAMINOPHEN
     Indication: Psoriatic arthropathy
     Dosage: UNK
     Route: 065
  10. VITAMIN D3 [Suspect]
     Active Substance: CHOLECALCIFEROL
     Indication: Psoriatic arthropathy
     Dosage: UNK
     Route: 065
  11. FOLIC ACID [Suspect]
     Active Substance: FOLIC ACID
     Indication: Psoriatic arthropathy
     Dosage: UNK
     Route: 065
  12. MELOXICAM [Suspect]
     Active Substance: MELOXICAM
     Indication: Psoriatic arthropathy
     Dosage: UNK
     Route: 065
  13. HUMIRA [Concomitant]
     Active Substance: ADALIMUMAB
     Indication: Product used for unknown indication
     Dosage: UNK
     Route: 065
     Dates: end: 202206

REACTIONS (16)
  - Polyarthritis [Unknown]
  - Peripheral swelling [Unknown]
  - Psoriasis [Unknown]
  - Joint swelling [Unknown]
  - Pain [Unknown]
  - Anger [Unknown]
  - Intervertebral disc degeneration [Unknown]
  - Dyspepsia [Unknown]
  - Musculoskeletal stiffness [Unknown]
  - Rash [Unknown]
  - Sleep disorder [Unknown]
  - Skin lesion [Unknown]
  - Skin exfoliation [Unknown]
  - Multiple injuries [Unknown]
  - Arthralgia [Unknown]
  - Drug ineffective [Unknown]
